FAERS Safety Report 12682052 (Version 7)
Quarter: 2016Q4

REPORT INFORMATION
  Report Type: Report from Study
  Country: BE (occurrence: BE)
  Receive Date: 20160824
  Receipt Date: 20161215
  Transmission Date: 20170207
  Serious: Yes (Death, Hospitalization)
  Sender: FDA-Public Use
  Company Number: BE-B.I. PHARMACEUTICALS,INC./RIDGEFIELD-2016-BI-54431BI

PATIENT
  Age: 62 Year
  Sex: Female
  Weight: 55.8 kg

DRUGS (17)
  1. PANTOMED [Concomitant]
     Active Substance: DEXPANTHENOL
     Route: 048
     Dates: start: 20140823, end: 20160830
  2. ADALAT [Concomitant]
     Active Substance: NIFEDIPINE
     Route: 048
     Dates: start: 20160901, end: 20160914
  3. ADALAT [Concomitant]
     Active Substance: NIFEDIPINE
     Route: 048
  4. IRBESARTAN. [Concomitant]
     Active Substance: IRBESARTAN
     Indication: HYPERTENSION
     Route: 048
     Dates: start: 20140326, end: 20160818
  5. IRBESARTAN. [Concomitant]
     Active Substance: IRBESARTAN
     Route: 048
  6. ADALAT [Concomitant]
     Active Substance: NIFEDIPINE
     Route: 048
     Dates: start: 20160819, end: 20160823
  7. BIBF 1120 [Suspect]
     Active Substance: NINTEDANIB
     Indication: INTERSTITIAL LUNG DISEASE
  8. DAFALGAN [Concomitant]
     Active Substance: ACETAMINOPHEN
     Indication: SCLERODERMA
     Dosage: DAILY DOSE: 1000MG PRN
     Route: 048
     Dates: start: 20160510, end: 20160818
  9. PANTOMED [Concomitant]
     Active Substance: DEXPANTHENOL
     Route: 048
     Dates: start: 20140901, end: 20160910
  10. ALDACTAZINE [Concomitant]
     Active Substance: ALTHIAZIDE\SPIRONOLACTONE
     Route: 048
  11. PANTOMED [Concomitant]
     Active Substance: DEXPANTHENOL
     Route: 048
     Dates: start: 20140914, end: 20161018
  12. PANTOMED [Concomitant]
     Active Substance: DEXPANTHENOL
     Route: 048
  13. ALDACTAZINE [Concomitant]
     Active Substance: ALTHIAZIDE\SPIRONOLACTONE
     Indication: HYPERTENSION
     Dosage: DOSE PER APPLICATION: 25/15
     Route: 048
     Dates: start: 20160122, end: 20160818
  14. DAFALGAN [Concomitant]
     Active Substance: ACETAMINOPHEN
     Route: 048
  15. BIBF 1120 [Suspect]
     Active Substance: NINTEDANIB
     Indication: SYSTEMIC SCLERODERMA
     Route: 048
     Dates: start: 20160609, end: 20160811
  16. PANTOMED [Concomitant]
     Active Substance: DEXPANTHENOL
     Indication: GASTROOESOPHAGEAL REFLUX DISEASE
     Route: 048
     Dates: start: 20140804, end: 20160823
  17. ADALAT [Concomitant]
     Active Substance: NIFEDIPINE
     Indication: HYPERTENSION
     Route: 048
     Dates: start: 20141001, end: 20160818

REACTIONS (46)
  - Respiratory failure [Unknown]
  - Lung infiltration [Unknown]
  - Klebsiella infection [Unknown]
  - Pyrexia [Recovered/Resolved]
  - Aspergillus infection [Unknown]
  - Circulatory collapse [Fatal]
  - Dizziness [Recovered/Resolved]
  - Gastric disorder [Recovered/Resolved]
  - Headache [Recovered/Resolved]
  - Cardiomegaly [Unknown]
  - Acute kidney injury [Unknown]
  - Chills [Recovered/Resolved]
  - Normochromic normocytic anaemia [Unknown]
  - Pleural effusion [Unknown]
  - Granulomatosis with polyangiitis [Unknown]
  - Osteopenia [Unknown]
  - Cytomegalovirus infection [Unknown]
  - Myocardial ischaemia [Unknown]
  - Ventricular tachycardia [Unknown]
  - Hypokalaemia [Unknown]
  - Enterococcal infection [Unknown]
  - Vomiting [Recovered/Resolved]
  - Hypoalbuminaemia [Recovered/Resolved]
  - Pain [Unknown]
  - Magnesium deficiency [Recovered/Resolved]
  - Intensive care unit acquired weakness [Unknown]
  - Eubacterium infection [Unknown]
  - Vascular pseudoaneurysm [Unknown]
  - Nausea [Recovered/Resolved]
  - Pyrexia [Recovered/Resolved]
  - Gastritis haemorrhagic [Unknown]
  - Hepatitis A antibody positive [Unknown]
  - Herpes simplex [Unknown]
  - Clostridium difficile infection [Unknown]
  - Clostridium bacteraemia [Unknown]
  - Diarrhoea [Recovered/Resolved]
  - Large intestine perforation [Recovered/Resolved]
  - Hypocalcaemia [Unknown]
  - Hypernatraemia [Unknown]
  - Blood phosphorus decreased [Recovered/Resolved]
  - Tracheostomy [Recovered/Resolved]
  - Abdominal pain [Recovered/Resolved]
  - Intervertebral disc disorder [Unknown]
  - Pulmonary haemorrhage [Unknown]
  - C-reactive protein increased [Unknown]
  - Epstein-Barr virus infection [Unknown]

NARRATIVE: CASE EVENT DATE: 20160614
